FAERS Safety Report 18729211 (Version 1)
Quarter: 2021Q1

REPORT INFORMATION
  Report Type: Spontaneous
  Country: IE (occurrence: IE)
  Receive Date: 20210111
  Receipt Date: 20210111
  Transmission Date: 20210419
  Serious: No
  Sender: FDA-Public Use
  Company Number: None

PATIENT
  Age: 70 Year
  Sex: Female

DRUGS (8)
  1. HUMIRA [Suspect]
     Active Substance: ADALIMUMAB
     Indication: RHEUMATOID ARTHRITIS
     Dosage: ?          OTHER FREQUENCY:EVERY 14 DAYS;?
     Dates: start: 20190301
  2. FOLIC ACID 1MG [Concomitant]
     Active Substance: FOLIC ACID
  3. PREDNAZONE 5MG [Concomitant]
  4. TRYEMPTERIN 75MG HCTV [Concomitant]
  5. ASPIRIN. [Concomitant]
     Active Substance: ASPIRIN
  6. PANTOPRAZOL 40MG [Concomitant]
     Active Substance: PANTOPRAZOLE SODIUM
  7. METOPRALOL 25MG [Concomitant]
  8. PROVASTETIN 40MG [Concomitant]

REACTIONS (2)
  - Influenza like illness [None]
  - Intentional dose omission [None]

NARRATIVE: CASE EVENT DATE: 20201227
